FAERS Safety Report 8438310 (Version 6)
Quarter: 2013Q3

REPORT INFORMATION
  Report Type: Report from Study
  Country: US (occurrence: US)
  Receive Date: 20120302
  Receipt Date: 20130926
  Transmission Date: 20140515
  Serious: Yes (Hospitalization)
  Sender: FDA-Public Use
  Company Number: US-ACTELION-A-NJ2012-61808

PATIENT
  Age: 68 Year
  Sex: Male

DRUGS (3)
  1. TRACLEER [Suspect]
     Indication: PULMONARY ARTERIAL HYPERTENSION
     Dosage: UNK
     Route: 048
     Dates: start: 20111227
  2. OXYGEN [Concomitant]
  3. COUMADIN [Concomitant]

REACTIONS (7)
  - Thrombosis [Unknown]
  - Wheezing [Unknown]
  - Nervousness [Unknown]
  - Muscular weakness [Unknown]
  - Cough [Unknown]
  - Dyspnoea [Unknown]
  - Chest pain [Unknown]
